FAERS Safety Report 6696553-3 (Version None)
Quarter: 2010Q2

REPORT INFORMATION
  Report Type: 
  Country: None (occurrence: None)
  Receive Date: 20100426
  Receipt Date: 20100415
  Transmission Date: 20101027
  Serious: Yes (Hospitalization, Disabling, Other)
  Sender: FDA-Public Use
  Company Number: A0846686A

PATIENT
  Age: 57 Year
  Sex: Male
  Weight: 68.6 kg

DRUGS (32)
  1. ARZERRA [Suspect]
     Route: 042
     Dates: start: 20091222
  2. DEXAMETHASONE [Concomitant]
     Route: 042
     Dates: start: 20100225, end: 20100225
  3. BENADRYL [Concomitant]
     Route: 042
     Dates: start: 20100225, end: 20100225
  4. ACETAMINOPHEN [Concomitant]
     Route: 048
     Dates: start: 20100225, end: 20100225
  5. ADVAIR DISKUS 100/50 [Concomitant]
  6. FOLIC ACID [Concomitant]
  7. VITAMIN B-12 [Concomitant]
  8. MULTI-VITAMIN [Concomitant]
  9. POTASSIUM [Concomitant]
  10. CITALOPRAM HYDROBROMIDE [Concomitant]
  11. PHENERGAN [Concomitant]
     Route: 042
     Dates: start: 20100225, end: 20100225
  12. KYTRIL [Concomitant]
     Route: 042
     Dates: start: 20100225, end: 20100225
  13. SULFAMETHOXAZOLE AND TRIMETHOPRIM [Concomitant]
     Route: 048
     Dates: start: 20091113
  14. DOXYCYCLINE MONOHYDRATE [Concomitant]
     Route: 048
     Dates: start: 20091113
  15. METOPROLOL TARTRATE [Concomitant]
     Route: 048
     Dates: start: 20091113
  16. IMMUNE GLOBULIN INTRAVENOUS (HUMAN) [Concomitant]
  17. GAMMAGARD [Concomitant]
  18. NORMAL SALINE [Concomitant]
  19. HEPARIN LOCK-FLUSH [Concomitant]
  20. DIPHENHYDRAMINE HYDROCHLORIDE [Concomitant]
  21. DEMEROL [Concomitant]
  22. AMOXICILLIN AND CLAVULANATE POTASSIUM [Concomitant]
  23. MINERAL TAB [Concomitant]
  24. LEVAQUIN [Concomitant]
  25. CEFUROXIME [Concomitant]
  26. ACETAMINOPHEN AND HYDROCODONE BITARTRATE [Concomitant]
  27. TEMAZEPAM [Concomitant]
  28. PREDNISONE [Concomitant]
  29. FLUOXYMESTERONE [Concomitant]
  30. KEFLEX [Concomitant]
  31. TAMIFLU [Concomitant]
  32. PROCHLORPERAZINE [Concomitant]

REACTIONS (19)
  - BONE PAIN [None]
  - BRONCHIECTASIS [None]
  - CARDIOMEGALY [None]
  - CHEST PAIN [None]
  - DIZZINESS [None]
  - DYSPNOEA [None]
  - EAR DISCOMFORT [None]
  - FLUSHING [None]
  - GRANULOCYTE COUNT INCREASED [None]
  - HAEMATOCRIT DECREASED [None]
  - LABORATORY TEST ABNORMAL [None]
  - LYMPHOCYTE COUNT INCREASED [None]
  - NAUSEA [None]
  - NEUTROPHIL COUNT DECREASED [None]
  - NEUTROPHIL COUNT INCREASED [None]
  - PNEUMONIA [None]
  - PULMONARY MASS [None]
  - VOMITING [None]
  - WHITE BLOOD CELL COUNT INCREASED [None]
